FAERS Safety Report 9209142 (Version 1)
Quarter: 2013Q2

REPORT INFORMATION
  Report Type: Spontaneous
  Country: BR (occurrence: BR)
  Receive Date: 20130404
  Receipt Date: 20130404
  Transmission Date: 20140414
  Serious: Yes (Death, Other)
  Sender: FDA-Public Use
  Company Number: PHHY2013BR032032

PATIENT
  Sex: Male

DRUGS (2)
  1. FORASEQ [Suspect]
     Indication: EMPHYSEMA
     Dosage: 2 DF, Q12H
     Dates: start: 2007
  2. SPIRIVA [Concomitant]
     Indication: EMPHYSEMA
     Dosage: 1 DF, DAILY

REACTIONS (4)
  - Pneumonia [Fatal]
  - Sepsis [Fatal]
  - Prostate cancer [Unknown]
  - Immunodeficiency [Unknown]
